FAERS Safety Report 4365713-9 (Version None)
Quarter: 2004Q2

REPORT INFORMATION
  Report Type: 
  Country: None (occurrence: None)
  Receive Date: 20040526
  Receipt Date: 20040526
  Transmission Date: 20050107
  Serious: Yes (Death)
  Sender: FDA-Public Use
  Company Number: None

PATIENT
  Age: 88 Year
  Sex: Female
  Weight: 51.7101 kg

DRUGS (2)
  1. DIAMOX [Suspect]
     Indication: GLAUCOMA
     Dosage: BID PO
     Route: 048
     Dates: start: 20040401
  2. ZOLOFT [Suspect]
     Indication: ANXIETY
     Dosage: QD  PO
     Route: 048
     Dates: start: 20030101

REACTIONS (2)
  - BLINDNESS TRANSIENT [None]
  - HALLUCINATION, VISUAL [None]
